FAERS Safety Report 23721479 (Version 2)
Quarter: 2024Q2

REPORT INFORMATION
  Report Type: Report from Study
  Country: FR (occurrence: FR)
  Receive Date: 20240409
  Receipt Date: 20240502
  Transmission Date: 20240715
  Serious: Yes (Hospitalization, Other)
  Sender: FDA-Public Use
  Company Number: FR-TAKEDA-2024TUS032981

PATIENT
  Age: 7 Year
  Sex: Male

DRUGS (12)
  1. TEDUGLUTIDE [Suspect]
     Active Substance: TEDUGLUTIDE
     Indication: Short-bowel syndrome
     Dosage: 1 MILLIGRAM, QD
     Route: 042
     Dates: start: 20220715
  2. TEDUGLUTIDE [Suspect]
     Active Substance: TEDUGLUTIDE
     Indication: Short-bowel syndrome
     Dosage: 1 MILLIGRAM, QD
     Route: 042
     Dates: start: 20220715
  3. TEDUGLUTIDE [Suspect]
     Active Substance: TEDUGLUTIDE
     Indication: Short-bowel syndrome
     Dosage: 1 MILLIGRAM, QD
     Route: 042
     Dates: start: 20220715
  4. TEDUGLUTIDE [Suspect]
     Active Substance: TEDUGLUTIDE
     Indication: Short-bowel syndrome
     Dosage: 1 MILLIGRAM, QD
     Route: 042
     Dates: start: 20220715
  5. OXACILLIN SODIUM [Concomitant]
     Active Substance: OXACILLIN SODIUM
     Indication: Antibiotic therapy
     Dosage: UNK
     Route: 065
     Dates: start: 20230627, end: 20230704
  6. VANCOMYCIN [Concomitant]
     Active Substance: VANCOMYCIN
     Indication: Antibiotic therapy
     Dosage: UNK
     Route: 065
     Dates: start: 20230622, end: 20230626
  7. ACEBUTOLOL [Concomitant]
     Active Substance: ACEBUTOLOL
     Indication: Asthma
     Dosage: 60 MILLIGRAM, BID
     Route: 048
     Dates: start: 20230222
  8. PIPERACILLIN SODIUM\TAZOBACTAM SODIUM [Concomitant]
     Active Substance: PIPERACILLIN SODIUM\TAZOBACTAM SODIUM
     Indication: Antibiotic therapy
     Dosage: 1.8 MILLIGRAM, QID
     Route: 048
     Dates: start: 20230130, end: 20230220
  9. CEFAZOLIN SODIUM [Concomitant]
     Active Substance: CEFAZOLIN SODIUM
     Indication: Osteitis
     Dosage: 150 MILLIGRAM, QD
     Route: 042
     Dates: start: 20231126, end: 20231221
  10. CLOXACILLIN [Concomitant]
     Active Substance: CLOXACILLIN
     Indication: Osteitis
     Dosage: 1400 MILLIGRAM, QID
     Route: 048
     Dates: start: 20231020, end: 20231025
  11. POLYETHYLENE GLYCOL 4000 [Concomitant]
     Active Substance: POLYETHYLENE GLYCOL 4000
     Dosage: 4 GRAM
     Route: 048
     Dates: start: 20231026
  12. NUBAIN [Concomitant]
     Active Substance: NALBUPHINE HYDROCHLORIDE
     Indication: Abdominal pain
     Dosage: 5 MILLIGRAM
     Route: 048
     Dates: start: 20231026

REACTIONS (1)
  - Staphylococcal bacteraemia [Recovered/Resolved]

NARRATIVE: CASE EVENT DATE: 20230626
